FAERS Safety Report 23913489 (Version 1)
Quarter: 2024Q2

REPORT INFORMATION
  Report Type: Spontaneous
  Country: ES (occurrence: ES)
  Receive Date: 20240529
  Receipt Date: 20240529
  Transmission Date: 20240715
  Serious: Yes (Other)
  Sender: FDA-Public Use
  Company Number: None

PATIENT

DRUGS (1)
  1. ORITAVANCIN [Suspect]
     Active Substance: ORITAVANCIN
     Indication: Arthritis bacterial
     Dosage: 1200 MILLIGRAM, SINGLE
     Route: 042
     Dates: start: 20240507, end: 20240507

REACTIONS (6)
  - Musculoskeletal chest pain [Recovered/Resolved]
  - Musculoskeletal stiffness [Recovered/Resolved]
  - Asthenia [Recovered/Resolved]
  - Vomiting [Recovered/Resolved]
  - Back pain [Recovered/Resolved]
  - Product use in unapproved indication [Recovered/Resolved]

NARRATIVE: CASE EVENT DATE: 20240507
